APPROVED DRUG PRODUCT: AMINOCAPROIC ACID
Active Ingredient: AMINOCAPROIC ACID
Strength: 250MG/ML
Dosage Form/Route: INJECTABLE;INJECTION
Application: A070888 | Product #001
Applicant: HOSPIRA INC
Approved: Jun 16, 1988 | RLD: No | RS: No | Type: DISCN